FAERS Safety Report 20719196 (Version 15)
Quarter: 2025Q3

REPORT INFORMATION
  Report Type: Spontaneous
  Country: CA (occurrence: CA)
  Receive Date: 20220418
  Receipt Date: 20250807
  Transmission Date: 20251021
  Serious: Yes (Hospitalization, Other)
  Sender: Haleon PLC
  Company Number: CA-GLAXOSMITHKLINE-CACH2022AMR013792

PATIENT
  Age: 75 Year
  Sex: Female
  Weight: 70 kg

DRUGS (112)
  1. DICLOFENAC [Suspect]
     Active Substance: DICLOFENAC
     Indication: Arthralgia
  2. DICLOFENAC [Suspect]
     Active Substance: DICLOFENAC
  3. DICLOFENAC [Suspect]
     Active Substance: DICLOFENAC
  4. DICLOFENAC [Suspect]
     Active Substance: DICLOFENAC
  5. DICLOFENAC [Suspect]
     Active Substance: DICLOFENAC
  6. DICLOFENAC [Suspect]
     Active Substance: DICLOFENAC
  7. CLONAZEPAM [Suspect]
     Active Substance: CLONAZEPAM
     Indication: Product used for unknown indication
  8. CLONAZEPAM [Suspect]
     Active Substance: CLONAZEPAM
  9. CLONAZEPAM [Suspect]
     Active Substance: CLONAZEPAM
  10. CLONAZEPAM [Suspect]
     Active Substance: CLONAZEPAM
  11. TUMS ULTRA [Suspect]
     Active Substance: CALCIUM CARBONATE
     Indication: Product used for unknown indication
  12. TUMS ULTRA [Suspect]
     Active Substance: CALCIUM CARBONATE
  13. PANADOL [Suspect]
     Active Substance: ACETAMINOPHEN
     Indication: Product used for unknown indication
  14. AZOPT [Suspect]
     Active Substance: BRINZOLAMIDE
     Indication: Glaucoma
  15. AZOPT [Suspect]
     Active Substance: BRINZOLAMIDE
  16. AZOPT [Suspect]
     Active Substance: BRINZOLAMIDE
  17. AZOPT [Suspect]
     Active Substance: BRINZOLAMIDE
  18. IPRATROPIUM [Suspect]
     Active Substance: IPRATROPIUM
     Indication: Product used for unknown indication
  19. IPRATROPIUM [Suspect]
     Active Substance: IPRATROPIUM
  20. IPRATROPIUM [Suspect]
     Active Substance: IPRATROPIUM
  21. IPRATROPIUM [Suspect]
     Active Substance: IPRATROPIUM
  22. IPRATROPIUM [Suspect]
     Active Substance: IPRATROPIUM
  23. ESTRADIOL [Suspect]
     Active Substance: ESTRADIOL
     Indication: Product used for unknown indication
  24. ESTRADIOL [Suspect]
     Active Substance: ESTRADIOL
  25. LATANOPROST [Suspect]
     Active Substance: LATANOPROST
     Indication: Glaucoma
  26. LATANOPROST [Suspect]
     Active Substance: LATANOPROST
  27. TELMISARTAN [Suspect]
     Active Substance: TELMISARTAN
     Indication: Product used for unknown indication
  28. TELMISARTAN [Suspect]
     Active Substance: TELMISARTAN
  29. TELMISARTAN [Suspect]
     Active Substance: TELMISARTAN
  30. TELMISARTAN [Suspect]
     Active Substance: TELMISARTAN
  31. AMOXICILLIN [Suspect]
     Active Substance: AMOXICILLIN
     Indication: Sinusitis
  32. AMOXICILLIN [Suspect]
     Active Substance: AMOXICILLIN
  33. AMOXICILLIN [Suspect]
     Active Substance: AMOXICILLIN
  34. AMOXICILLIN [Suspect]
     Active Substance: AMOXICILLIN
  35. AMOXICILLIN [Suspect]
     Active Substance: AMOXICILLIN
  36. ESTRADIOL [Suspect]
     Active Substance: ESTRADIOL
     Indication: Product used for unknown indication
  37. ESTRADIOL [Suspect]
     Active Substance: ESTRADIOL
  38. ESTRADIOL [Suspect]
     Active Substance: ESTRADIOL
  39. ESTRADIOL [Suspect]
     Active Substance: ESTRADIOL
  40. VITAMIN B6 [Suspect]
     Active Substance: PYRIDOXINE HYDROCHLORIDE
     Indication: Product used for unknown indication
  41. VITAMIN B6 [Suspect]
     Active Substance: PYRIDOXINE HYDROCHLORIDE
  42. ZOPICLONE [Suspect]
     Active Substance: ZOPICLONE
     Indication: Product used for unknown indication
  43. ZOPICLONE [Suspect]
     Active Substance: ZOPICLONE
  44. ZOPICLONE [Suspect]
     Active Substance: ZOPICLONE
  45. ZOPICLONE [Suspect]
     Active Substance: ZOPICLONE
  46. ZOPICLONE [Suspect]
     Active Substance: ZOPICLONE
  47. ZOPICLONE [Suspect]
     Active Substance: ZOPICLONE
  48. ATORVASTATIN CALCIUM [Suspect]
     Active Substance: ATORVASTATIN CALCIUM
     Indication: Product used for unknown indication
  49. ATORVASTATIN CALCIUM [Suspect]
     Active Substance: ATORVASTATIN CALCIUM
  50. NAPROXEN [Suspect]
     Active Substance: NAPROXEN
     Indication: Arthralgia
  51. NAPROXEN [Suspect]
     Active Substance: NAPROXEN
  52. NAPROXEN [Suspect]
     Active Substance: NAPROXEN
  53. NAPROXEN [Suspect]
     Active Substance: NAPROXEN
  54. TUMS [Suspect]
     Active Substance: CALCIUM CARBONATE
     Indication: Product used for unknown indication
  55. IBUPROFEN [Suspect]
     Active Substance: IBUPROFEN
     Indication: Arthralgia
  56. IBUPROFEN [Suspect]
     Active Substance: IBUPROFEN
  57. IBUPROFEN [Suspect]
     Active Substance: IBUPROFEN
  58. PREGABALIN [Suspect]
     Active Substance: PREGABALIN
     Indication: Arthralgia
  59. PREGABALIN [Suspect]
     Active Substance: PREGABALIN
  60. PREGABALIN [Suspect]
     Active Substance: PREGABALIN
  61. PREGABALIN [Suspect]
     Active Substance: PREGABALIN
  62. PREGABALIN [Suspect]
     Active Substance: PREGABALIN
  63. ACETAMINOPHEN [Suspect]
     Active Substance: ACETAMINOPHEN
     Indication: Product used for unknown indication
  64. DEXPANTHENOL [Suspect]
     Active Substance: DEXPANTHENOL
     Indication: Product used for unknown indication
  65. ERGOCALCIFEROL [Suspect]
     Active Substance: ERGOCALCIFEROL
     Indication: Product used for unknown indication
  66. ERGOCALCIFEROL [Suspect]
     Active Substance: ERGOCALCIFEROL
  67. FOLIC ACID [Suspect]
     Active Substance: FOLIC ACID
     Indication: Product used for unknown indication
  68. GABAPENTIN [Suspect]
     Active Substance: GABAPENTIN
     Indication: Arthralgia
  69. GABAPENTIN [Suspect]
     Active Substance: GABAPENTIN
  70. VITAMIN D3 [Suspect]
     Active Substance: CHOLECALCIFEROL
     Indication: Product used for unknown indication
  71. VITAMIN D3 [Suspect]
     Active Substance: CHOLECALCIFEROL
  72. VITAMIN D3 [Suspect]
     Active Substance: CHOLECALCIFEROL
  73. NICOTINAMIDE [Suspect]
     Active Substance: NIACINAMIDE
     Indication: Product used for unknown indication
  74. NICOTINAMIDE [Suspect]
     Active Substance: NIACINAMIDE
  75. PYRIDOXINE HYDROCHLORIDE [Suspect]
     Active Substance: PYRIDOXINE HYDROCHLORIDE
     Indication: Product used for unknown indication
  76. PYRIDOXINE HYDROCHLORIDE [Suspect]
     Active Substance: PYRIDOXINE HYDROCHLORIDE
  77. THIAMINE HYDROCHLORIDE [Suspect]
     Active Substance: THIAMINE HYDROCHLORIDE
     Indication: Product used for unknown indication
  78. THIAMINE HYDROCHLORIDE [Suspect]
     Active Substance: THIAMINE HYDROCHLORIDE
  79. VITAMIN A [Suspect]
     Active Substance: VITAMIN A
     Indication: Product used for unknown indication
  80. VITAMIN A [Suspect]
     Active Substance: VITAMIN A
  81. VITAMIN C [Suspect]
     Active Substance: ASCORBIC ACID
     Indication: Product used for unknown indication
  82. VITAMIN C [Suspect]
     Active Substance: ASCORBIC ACID
  83. RIBOFLAVIN [Suspect]
     Active Substance: RIBOFLAVIN
     Indication: Product used for unknown indication
  84. RIBOFLAVIN [Suspect]
     Active Substance: RIBOFLAVIN
  85. CALCIUM CARBONATE\MAGNESIUM CARBONATE\MAGNESIUM TRISILICATE [Suspect]
     Active Substance: CALCIUM CARBONATE\MAGNESIUM CARBONATE\MAGNESIUM TRISILICATE
     Indication: Product used for unknown indication
  86. ATORVASTATIN [Concomitant]
     Active Substance: ATORVASTATIN
     Indication: Product used for unknown indication
  87. ATORVASTATIN [Concomitant]
     Active Substance: ATORVASTATIN
  88. ALBUTEROL SULFATE\IPRATROPIUM BROMIDE [Concomitant]
     Active Substance: ALBUTEROL SULFATE\IPRATROPIUM BROMIDE
     Indication: Product used for unknown indication
  89. ALBUTEROL SULFATE\IPRATROPIUM BROMIDE [Concomitant]
     Active Substance: ALBUTEROL SULFATE\IPRATROPIUM BROMIDE
  90. IPRATROPIUM [Concomitant]
     Active Substance: IPRATROPIUM
     Indication: Product used for unknown indication
  91. IPRATROPIUM [Concomitant]
     Active Substance: IPRATROPIUM
  92. IPRATROPIUM [Concomitant]
     Active Substance: IPRATROPIUM
  93. DIETARY SUPPLEMENT\MINERALS\VITAMINS [Suspect]
     Active Substance: DIETARY SUPPLEMENT\MINERALS\VITAMINS
     Indication: Product used for unknown indication
  94. DIETARY SUPPLEMENT\MINERALS\VITAMINS [Suspect]
     Active Substance: DIETARY SUPPLEMENT\MINERALS\VITAMINS
  95. PREGABALIN [Suspect]
     Active Substance: PREGABALIN
     Indication: Arthralgia
  96. PREGABALIN [Suspect]
     Active Substance: PREGABALIN
  97. PREGABALIN [Suspect]
     Active Substance: PREGABALIN
  98. PREGABALIN [Suspect]
     Active Substance: PREGABALIN
  99. VITAMINS [Suspect]
     Active Substance: VITAMINS
     Indication: Product used for unknown indication
  100. VITAMINS [Suspect]
     Active Substance: VITAMINS
  101. VITAMINS [Suspect]
     Active Substance: VITAMINS
  102. VITAMINS [Suspect]
     Active Substance: VITAMINS
  103. TUMS REGULAR STRENGTH [Suspect]
     Active Substance: CALCIUM CARBONATE
     Indication: Product used for unknown indication
  104. ASCORBIC ACID [Suspect]
     Active Substance: ASCORBIC ACID
     Indication: Product used for unknown indication
  105. ASCORBIC ACID [Suspect]
     Active Substance: ASCORBIC ACID
  106. ACETAMINOPHEN [Suspect]
     Active Substance: ACETAMINOPHEN
     Indication: Product used for unknown indication
  107. ACETAMINOPHEN [Suspect]
     Active Substance: ACETAMINOPHEN
  108. ACETAMINOPHEN [Suspect]
     Active Substance: ACETAMINOPHEN
  109. ACETAMINOPHEN [Suspect]
     Active Substance: ACETAMINOPHEN
  110. ACETAMINOPHEN [Suspect]
     Active Substance: ACETAMINOPHEN
  111. AMOXICILLIN [Suspect]
     Active Substance: AMOXICILLIN
     Indication: Sinusitis
  112. VOLTAREN [Suspect]
     Active Substance: DICLOFENAC SODIUM
     Indication: Arthralgia

REACTIONS (3)
  - Toxic epidermal necrolysis [Recovered/Resolved]
  - Off label use [Recovered/Resolved]
  - Haemoglobin decreased [Recovered/Resolved]
